FAERS Safety Report 8336421-4 (Version None)
Quarter: 2012Q2

REPORT INFORMATION
  Report Type: 
  Country: None (occurrence: None)
  Receive Date: 20120504
  Receipt Date: 20120502
  Transmission Date: 20120825
  Serious: Yes (Death)
  Sender: FDA-Public Use
  Company Number: PHEH2012US007492

PATIENT
  Sex: Male

DRUGS (6)
  1. GLEEVEC [Suspect]
     Route: 048
  2. PILOCARPINE [Concomitant]
  3. LEVOTHYROXINE SODIUM [Concomitant]
  4. TIMOLOL MALEATE [Concomitant]
  5. GLEEVEC [Suspect]
     Indication: GASTROINTESTINAL STROMAL TUMOUR
     Dosage: 400 MG, UNK
     Route: 048
     Dates: start: 20080101
  6. ONDANSETRON [Concomitant]

REACTIONS (2)
  - MALAISE [None]
  - DEATH [None]
